FAERS Safety Report 9253029 (Version 1)
Quarter: 2013Q2

REPORT INFORMATION
  Report Type: Spontaneous
  Country: US (occurrence: US)
  Receive Date: 20130424
  Receipt Date: 20130424
  Transmission Date: 20140414
  Serious: No
  Sender: FDA-Public Use
  Company Number: US-ASTRAZENECA-2013SE23140

PATIENT
  Age: 57 Year
  Sex: Female
  Weight: 71.7 kg

DRUGS (3)
  1. SEROQUEL XR [Suspect]
     Indication: BIPOLAR DISORDER
     Route: 048
     Dates: start: 2006
  2. LAMICTAL GENERIC [Concomitant]
     Indication: BIPOLAR DISORDER
     Dates: start: 2003
  3. DEPAKOTE GENERIC [Concomitant]
     Indication: BIPOLAR DISORDER
     Dates: start: 2003

REACTIONS (5)
  - Nervousness [Unknown]
  - Pain [Unknown]
  - Insomnia [Unknown]
  - Activities of daily living impaired [Unknown]
  - Intentional drug misuse [Unknown]
